FAERS Safety Report 22019161 (Version 1)
Quarter: 2023Q1

REPORT INFORMATION
  Report Type: Report from Study
  Country: CO (occurrence: CO)
  Receive Date: 20230222
  Receipt Date: 20230222
  Transmission Date: 20230417
  Serious: Yes (Life-Threatening, Other)
  Sender: FDA-Public Use
  Company Number: CO-ABBVIE-4314186

PATIENT
  Age: 43 Year
  Sex: Male

DRUGS (1)
  1. ZEMPLAR [Suspect]
     Active Substance: PARICALCITOL
     Indication: Chronic kidney disease
     Dosage: FORM STRENGTH 5 MICROGRAM, POST DIALYSIS
     Route: 042
     Dates: start: 20160831, end: 20230110

REACTIONS (2)
  - Coma [Recovered/Resolved]
  - Blood phosphorus abnormal [Not Recovered/Not Resolved]

NARRATIVE: CASE EVENT DATE: 20220501
